FAERS Safety Report 9882133 (Version 1)
Quarter: 2014Q1

REPORT INFORMATION
  Report Type: Report from Study
  Country: AR (occurrence: AR)
  Receive Date: 20140207
  Receipt Date: 20140207
  Transmission Date: 20141002
  Serious: Yes (Other)
  Sender: FDA-Public Use
  Company Number: PHHY2014AR015307

PATIENT
  Sex: Female

DRUGS (1)
  1. DIOVAN D [Suspect]
     Indication: HYPERTENSION
     Dosage: 160/12.5 MG, DAILY
     Route: 048
     Dates: start: 200202

REACTIONS (5)
  - Arthropathy [Recovered/Resolved]
  - Blood pressure systolic increased [Recovered/Resolved]
  - Road traffic accident [Unknown]
  - Shock [Unknown]
  - Stress [Unknown]
